FAERS Safety Report 23657597 (Version 1)
Quarter: 2024Q1

REPORT INFORMATION
  Report Type: Spontaneous
  Country: US (occurrence: US)
  Receive Date: 20240321
  Receipt Date: 20240321
  Transmission Date: 20240409
  Serious: No
  Sender: FDA-Public Use
  Company Number: US-LGM Pharma Solutions, LLC-2154593

PATIENT
  Age: 7 Year
  Sex: Male

DRUGS (4)
  1. CHENODAL [Suspect]
     Active Substance: CHENODIOL
     Route: 048
     Dates: start: 20231029
  2. Sodium Flouride (Unspecified) [Concomitant]
     Route: 065
  3. Culturelle Digestive Daily Pro [Concomitant]
     Route: 065
  4. Flintstones Multivitamin [Concomitant]
     Route: 048

REACTIONS (1)
  - Gastroenteritis viral [Unknown]
